FAERS Safety Report 25009440 (Version 2)
Quarter: 2025Q1

REPORT INFORMATION
  Report Type: Spontaneous
  Country: GB (occurrence: GB)
  Receive Date: 20250225
  Receipt Date: 20250326
  Transmission Date: 20250408
  Serious: No
  Sender: IDORSIA PHARMACEUTICALS
  Company Number: None

PATIENT

DRUGS (4)
  1. QUVIVIQ [Suspect]
     Active Substance: DARIDOREXANT
     Indication: Product used for unknown indication
     Dosage: 50 MG, QD
     Route: 048
     Dates: start: 20241218
  2. RISPERIDONE [Concomitant]
     Active Substance: RISPERIDONE
     Dosage: 6 MG, QD
  3. PROCYCLIDINE [Concomitant]
     Active Substance: PROCYCLIDINE
  4. PROCYCLIDINE [Concomitant]
     Active Substance: PROCYCLIDINE

REACTIONS (1)
  - Headache [Unknown]
